FAERS Safety Report 8588876-8 (Version None)
Quarter: 2012Q3

REPORT INFORMATION
  Report Type: 
  Country: None (occurrence: None)
  Receive Date: 20120813
  Receipt Date: 20120810
  Transmission Date: 20120928
  Serious: Yes (Disabling)
  Sender: FDA-Public Use
  Company Number: US-PFIZER INC-2012195780

PATIENT
  Sex: Female

DRUGS (1)
  1. EFFEXOR XR [Suspect]
     Dosage: 75 MG, DAILY
     Route: 048

REACTIONS (8)
  - GAIT DISTURBANCE [None]
  - BONE DISORDER [None]
  - ACTIVITIES OF DAILY LIVING IMPAIRED [None]
  - DYSSTASIA [None]
  - VICTIM OF ABUSE [None]
  - SCIATIC NERVE INJURY [None]
  - FRACTURE [None]
  - MUSCULOSKELETAL DISORDER [None]
